FAERS Safety Report 9813692 (Version 1)
Quarter: 2014Q1

REPORT INFORMATION
  Report Type: Spontaneous
  Country: US (occurrence: None)
  Receive Date: 20140109
  Receipt Date: 20140109
  Transmission Date: 20141002
  Serious: Yes (Hospitalization)
  Sender: FDA-Public Use
  Company Number: None

PATIENT
  Age: 65 Year
  Sex: Female
  Weight: 75.6 kg

DRUGS (3)
  1. BLEOMYCIN [Suspect]
     Dosage: 30 UNIT
  2. CISPLATIN [Suspect]
  3. ETOPOSIDE (VP-16) [Suspect]

REACTIONS (1)
  - Neutropenia [None]
